FAERS Safety Report 23262564 (Version 2)
Quarter: 2025Q1

REPORT INFORMATION
  Report Type: Spontaneous
  Country: US (occurrence: US)
  Receive Date: 20231205
  Receipt Date: 20250328
  Transmission Date: 20250409
  Serious: No
  Sender: PFIZER
  Company Number: US-PFIZER INC-PV202300128949

PATIENT
  Age: 73 Year
  Sex: Female
  Weight: 137.1 kg

DRUGS (4)
  1. IBRANCE [Suspect]
     Active Substance: PALBOCICLIB
     Indication: Breast cancer metastatic
  2. IBRANCE [Suspect]
     Active Substance: PALBOCICLIB
     Route: 048
     Dates: start: 202201
  3. LETROZOLE [Concomitant]
     Active Substance: LETROZOLE
     Indication: Hormone receptor positive HER2 negative breast cancer
     Dates: start: 202108
  4. ARIMIDEX [Concomitant]
     Active Substance: ANASTROZOLE

REACTIONS (2)
  - Pruritus [Unknown]
  - Rash [Unknown]
